FAERS Safety Report 14183966 (Version 1)
Quarter: 2017Q4

REPORT INFORMATION
  Report Type: Spontaneous
  Country: US (occurrence: US)
  Receive Date: 20171113
  Receipt Date: 20171113
  Transmission Date: 20180321
  Serious: No
  Sender: FDA-Public Use
  Company Number: US-ASTRAZENECA-2017SF12794

PATIENT
  Sex: Female

DRUGS (3)
  1. MYSOLINE [Concomitant]
     Active Substance: PRIMIDONE
  2. DILANTIN [Concomitant]
     Active Substance: PHENYTOIN
  3. TAGRISSO [Suspect]
     Active Substance: OSIMERTINIB
     Route: 048

REACTIONS (2)
  - Memory impairment [Unknown]
  - Fatigue [Unknown]
